FAERS Safety Report 8535248-8 (Version None)
Quarter: 2012Q3

REPORT INFORMATION
  Report Type: 
  Country: None (occurrence: None)
  Receive Date: 20120725
  Receipt Date: 20120710
  Transmission Date: 20120928
  Serious: Yes (Hospitalization, Other)
  Sender: FDA-Public Use
  Company Number: BR-AMGEN-BRASP2012024351

PATIENT
  Age: 68 Year
  Sex: Female
  Weight: 58 kg

DRUGS (6)
  1. ENBREL [Suspect]
     Indication: PSORIATIC ARTHROPATHY
     Dosage: UNK
     Route: 058
     Dates: start: 20101001
  2. ENBREL [Suspect]
     Dosage: 50 MG, 2X/WEEK
     Route: 058
     Dates: start: 20120401, end: 20120101
  3. OMEPRAZOLE [Concomitant]
     Indication: GASTRIC DISORDER
     Dosage: 20 MG, DAILY
  4. AMLOVAS [Concomitant]
     Indication: HYPERTENSION
     Dosage: 10 MG, DAILY
  5. RISEDROSS [Concomitant]
     Indication: OSTEOPOROSIS
     Dosage: 35 MG, 3X/DAY, EVERY 8 HOURS
  6. DIAMICRON [Concomitant]
     Indication: TYPE 2 DIABETES MELLITUS
     Dosage: 50 MG, DAILY

REACTIONS (18)
  - WOUND [None]
  - PAIN [None]
  - DRUG INEFFECTIVE [None]
  - CONFUSIONAL STATE [None]
  - INCORRECT STORAGE OF DRUG [None]
  - FEMUR FRACTURE [None]
  - PAIN IN EXTREMITY [None]
  - COMA [None]
  - INFLAMMATION [None]
  - FALL [None]
  - LOSS OF CONSCIOUSNESS [None]
  - SYNCOPE [None]
  - HIP FRACTURE [None]
  - GAIT DISTURBANCE [None]
  - PSORIASIS [None]
  - HAEMORRHAGE [None]
  - INCORRECT DOSE ADMINISTERED [None]
  - THERAPEUTIC RESPONSE DECREASED [None]
